FAERS Safety Report 11953847 (Version 1)
Quarter: 2016Q1

REPORT INFORMATION
  Report Type: Report from Study
  Country: US (occurrence: US)
  Receive Date: 20160125
  Receipt Date: 20160125
  Transmission Date: 20160526
  Serious: No
  Sender: FDA-Public Use
  Company Number: US-AMGEN-USASL2016005701

PATIENT
  Age: 59 Year
  Sex: Female

DRUGS (3)
  1. PREDNISONE. [Concomitant]
     Active Substance: PREDNISONE
     Indication: PAIN
     Dosage: 5 MG AND UPTO 10 MG, IF NEEDED
  2. CELEBREX [Concomitant]
     Active Substance: CELECOXIB
     Dosage: UNK
  3. ENBREL [Suspect]
     Active Substance: ETANERCEPT
     Indication: RHEUMATOID ARTHRITIS
     Dosage: 50 MG, TWICE WEEKLY
     Route: 065

REACTIONS (14)
  - Arthritis [Unknown]
  - Increased tendency to bruise [Unknown]
  - Mobility decreased [Unknown]
  - Inappropriate schedule of drug administration [Unknown]
  - Arthralgia [Unknown]
  - Gait disturbance [Unknown]
  - Deformity [Not Recovered/Not Resolved]
  - Foot deformity [Unknown]
  - Drug effect incomplete [Unknown]
  - Lung disorder [Unknown]
  - Pain [Recovering/Resolving]
  - Pain in extremity [Unknown]
  - Urticaria [Unknown]
  - Injection site bruising [Unknown]

NARRATIVE: CASE EVENT DATE: 201506
